FAERS Safety Report 13909663 (Version 2)
Quarter: 2023Q4

REPORT INFORMATION
  Report Type: Spontaneous
  Country: US (occurrence: US)
  Receive Date: 20170828
  Receipt Date: 20231023
  Transmission Date: 20240110
  Serious: No
  Sender: FDA-Public Use
  Company Number: US-PFIZER INC-2017322130

PATIENT
  Age: 48 Year
  Sex: Female

DRUGS (1)
  1. XELJANZ [Suspect]
     Active Substance: TOFACITINIB CITRATE
     Dosage: 5 MG, 2X/DAY
     Route: 065

REACTIONS (7)
  - Platelet count increased [Unknown]
  - Blood creatinine decreased [Unknown]
  - Lymphocyte count increased [Unknown]
  - Arthralgia [Unknown]
  - Haematocrit decreased [Unknown]
  - Low density lipoprotein increased [Unknown]
  - Drug ineffective [Unknown]
